FAERS Safety Report 5330408-1 (Version None)
Quarter: 2007Q2

REPORT INFORMATION
  Report Type: 
  Country: None (occurrence: None)
  Receive Date: 20070521
  Receipt Date: 20070509
  Transmission Date: 20071010
  Serious: Yes (Other)
  Sender: FDA-Public Use
  Company Number: FR-PFIZER INC-2007024615

PATIENT
  Sex: Female
  Weight: 46 kg

DRUGS (3)
  1. NEURONTIN [Suspect]
     Indication: CONVULSION
     Route: 048
     Dates: start: 20040301, end: 20070401
  2. ACTONEL [Concomitant]
     Indication: OSTEOPOROSIS
     Route: 048
  3. CALCIUM CARBONATE/COLECALCIFEROL [Concomitant]
     Indication: OSTEOPOROSIS
     Route: 048

REACTIONS (4)
  - OPTIC NERVE DISORDER [None]
  - THYROIDITIS [None]
  - VISUAL ACUITY REDUCED [None]
  - VISUAL FIELD DEFECT [None]
